FAERS Safety Report 24608207 (Version 1)
Quarter: 2024Q4

REPORT INFORMATION
  Report Type: Spontaneous
  Country: US (occurrence: US)
  Receive Date: 20241112
  Receipt Date: 20241112
  Transmission Date: 20250114
  Serious: No
  Sender: MYLAN
  Company Number: US-MYLANLABS-2024M1098307

PATIENT
  Sex: Female

DRUGS (2)
  1. CLONIDINE TRANSDERMAL SYSTEM [Suspect]
     Active Substance: CLONIDINE
     Indication: Hypertension
     Dosage: 0.3 MILLIGRAM, QD (PER DAY, WEEKLY)
     Route: 062
  2. CLONAZEPAM [Concomitant]
     Active Substance: CLONAZEPAM
     Dosage: 0.5 MILLIGRAM
     Route: 065

REACTIONS (7)
  - Application site irritation [Unknown]
  - Application site scar [Unknown]
  - Application site hypersensitivity [Unknown]
  - Application site erythema [Unknown]
  - Rash [Unknown]
  - Drug ineffective [Unknown]
  - Product adhesion issue [Unknown]
